FAERS Safety Report 14903655 (Version 2)
Quarter: 2018Q3

REPORT INFORMATION
  Report Type: Spontaneous
  Country: US (occurrence: US)
  Receive Date: 20180516
  Receipt Date: 20180706
  Transmission Date: 20181010
  Serious: No
  Sender: FDA-Public Use
  Company Number: US-ACTELION-A-NJ2018-171696

PATIENT
  Age: 47 Year
  Sex: Female

DRUGS (1)
  1. VALCHLOR [Suspect]
     Active Substance: MECHLORETHAMINE
     Indication: MYCOSIS FUNGOIDES
     Dosage: UNK
     Route: 061
     Dates: start: 20180416

REACTIONS (7)
  - Product storage error [Unknown]
  - Skin discolouration [Unknown]
  - Respiratory disorder [Unknown]
  - Treatment noncompliance [Recovered/Resolved]
  - Rash [Unknown]
  - Cough [Unknown]
  - Malaise [Unknown]
